FAERS Safety Report 4355161-X (Version None)
Quarter: 2004Q2

REPORT INFORMATION
  Report Type: 
  Country: None (occurrence: None)
  Receive Date: 20040504
  Receipt Date: 20040423
  Transmission Date: 20050107
  Serious: Yes (Hospitalization)
  Sender: FDA-Public Use
  Company Number: 2004206965NL

PATIENT
  Age: 75 Year
  Sex: Female

DRUGS (2)
  1. CAMPTOSAR [Suspect]
     Indication: SMALL CELL LUNG CANCER STAGE UNSPECIFIED
     Dosage: 65 MG/M2, CYCLIC , IV
     Route: 042
     Dates: start: 20040212, end: 20040212
  2. CISPLATINUM(CISPLATIN) SOLUTION, STERILE [Suspect]
     Indication: SMALL CELL LUNG CANCER STAGE UNSPECIFIED
     Dosage: 80 MG/M2, CYCLIC, IV
     Route: 042
     Dates: start: 20040212, end: 20040212

REACTIONS (5)
  - CIRCULATORY COLLAPSE [None]
  - DEHYDRATION [None]
  - DIARRHOEA [None]
  - MEDICATION ERROR [None]
  - SMALL CELL LUNG CANCER STAGE UNSPECIFIED [None]
